FAERS Safety Report 5760239-X (Version None)
Quarter: 2008Q2

REPORT INFORMATION
  Report Type: 
  Country: None (occurrence: None)
  Receive Date: 20080602
  Receipt Date: 20080519
  Transmission Date: 20081010
  Serious: No
  Sender: FDA-Public Use
  Company Number: RENA-1000081

PATIENT
  Age: 62 Year
  Sex: Male
  Weight: 63 kg

DRUGS (2)
  1. RENAGEL [Suspect]
     Indication: HYPERPHOSPHATAEMIA
     Dosage: ORAL
     Route: 048
     Dates: start: 20080404
  2. LASIX [Concomitant]

REACTIONS (2)
  - RASH GENERALISED [None]
  - TOXIC SKIN ERUPTION [None]
